FAERS Safety Report 4986074-8 (Version None)
Quarter: 2006Q2

REPORT INFORMATION
  Report Type: 
  Country: None (occurrence: None)
  Receive Date: 20060428
  Receipt Date: 20041027
  Transmission Date: 20061013
  Serious: Yes (Other)
  Sender: FDA-Public Use
  Company Number: PHEH2004US11636

PATIENT
  Age: 50 Year
  Sex: Female

DRUGS (12)
  1. PAXIL [Concomitant]
     Indication: ANXIETY
     Dosage: 20 MG, QD
     Dates: start: 20010809
  2. ARIMIDEX [Concomitant]
     Indication: BREAST CANCER
     Dosage: 1 MG, QD
     Dates: start: 20021210
  3. DURAGESIC-100 [Concomitant]
     Indication: BONE PAIN
     Dosage: 25 UG, QD
     Dates: start: 20021210, end: 20030422
  4. LORAZEPAM [Concomitant]
     Dosage: 0.5 MG, PRN
     Dates: start: 20030303
  5. CELEBREX [Concomitant]
     Dosage: 200 MG, PRN
     Dates: start: 20030303
  6. ZOLADEX [Concomitant]
     Dosage: 3.6 MG, UNK
     Dates: start: 20030711, end: 20031014
  7. PREVACID [Concomitant]
     Dosage: 30 MG, PRN
     Dates: start: 20031125
  8. RADIATION THERAPY [Concomitant]
     Indication: BONE LESION
     Dates: start: 20021210
  9. FASLODEX [Concomitant]
     Dosage: 250 MG, QMO
     Dates: start: 20030401, end: 20031001
  10. TAXOTERE [Concomitant]
     Dosage: 135 MG, QW3
  11. DECADRON-PHOSPHAT [Concomitant]
     Indication: NAUSEA
     Dosage: UNK, PRN
     Route: 048
  12. ZOMETA [Suspect]
     Indication: BREAST CANCER METASTATIC
     Dosage: 4 MG, QMO
     Dates: start: 20030203, end: 20040814

REACTIONS (10)
  - EXCESSIVE GRANULATION TISSUE [None]
  - IMPAIRED HEALING [None]
  - INFECTION [None]
  - OSTEOMYELITIS [None]
  - OSTEONECROSIS [None]
  - PAIN IN JAW [None]
  - PRIMARY SEQUESTRUM [None]
  - TOOTH EXTRACTION [None]
  - TOOTH LOSS [None]
  - WOUND DEBRIDEMENT [None]
